FAERS Safety Report 20468599 (Version 1)
Quarter: 2022Q1

REPORT INFORMATION
  Report Type: Spontaneous
  Country: US (occurrence: None)
  Receive Date: 20220212
  Receipt Date: 20220212
  Transmission Date: 20220423
  Serious: Yes (unspecified)
  Sender: FDA-Public Use
  Company Number: None

PATIENT
  Age: 55 Year
  Sex: Female
  Weight: 54 kg

DRUGS (1)
  1. PEMAZYRE [Suspect]
     Active Substance: PEMIGATINIB
     Route: 048
     Dates: start: 20220209, end: 20220211

REACTIONS (4)
  - Product dispensing error [None]
  - Wrong product administered [None]
  - Product dispensing error [None]
  - Malaise [None]

NARRATIVE: CASE EVENT DATE: 20220211
